FAERS Safety Report 26170364 (Version 1)
Quarter: 2025Q4

REPORT INFORMATION
  Report Type: Spontaneous
  Country: US (occurrence: US)
  Receive Date: 20251217
  Receipt Date: 20251217
  Transmission Date: 20260118
  Serious: No
  Sender: LUNDBECK
  Company Number: US-LUNDBECK-DKLU4022399

PATIENT
  Age: 22 Year
  Sex: Female
  Weight: 54.5 kg

DRUGS (1)
  1. VYEPTI [Suspect]
     Active Substance: EPTINEZUMAB-JJMR
     Indication: Product used for unknown indication
     Dosage: 100 MILLIGRAM
     Route: 041
     Dates: start: 20251126

REACTIONS (3)
  - Pruritus [Unknown]
  - Throat irritation [Unknown]
  - Wheezing [Unknown]

NARRATIVE: CASE EVENT DATE: 20251126
